FAERS Safety Report 17101574 (Version 1)
Quarter: 2019Q4

REPORT INFORMATION
  Report Type: Spontaneous
  Country: FR (occurrence: FR)
  Receive Date: 20191202
  Receipt Date: 20191202
  Transmission Date: 20200122
  Serious: Yes (Hospitalization)
  Sender: FDA-Public Use
  Company Number: FR-MYLANLABS-2019M1117968

PATIENT
  Age: 63 Year
  Sex: Male
  Weight: 82 kg

DRUGS (2)
  1. NAVELBINE [Suspect]
     Active Substance: VINORELBINE TARTRATE
     Indication: LUNG ADENOCARCINOMA
     Dosage: 2 DOSAGE FORM, CYCLE
     Route: 042
     Dates: start: 20190425, end: 20190502
  2. CISPLATIN. [Suspect]
     Active Substance: CISPLATIN
     Indication: LUNG ADENOCARCINOMA
     Dosage: 1 DOSAGE FORM, CYCLE
     Route: 042
     Dates: start: 20190425, end: 20190425

REACTIONS (2)
  - Tonsillitis [Recovered/Resolved]
  - Febrile bone marrow aplasia [Recovered/Resolved]

NARRATIVE: CASE EVENT DATE: 20190505
